FAERS Safety Report 10089013 (Version 1)
Quarter: 2014Q2

REPORT INFORMATION
  Report Type: Spontaneous
  Country: US (occurrence: None)
  Receive Date: 20140418
  Receipt Date: 20140418
  Transmission Date: 20141212
  Serious: Yes (Other)
  Sender: FDA-Public Use
  Company Number: None

PATIENT
  Sex: Female
  Weight: 61.24 kg

DRUGS (2)
  1. MONISTAT 7 [Suspect]
     Indication: VULVOVAGINAL MYCOTIC INFECTION
     Dates: start: 2014
  2. THYROXINE [Concomitant]

REACTIONS (1)
  - Urinary retention [None]
